FAERS Safety Report 4875005-7 (Version None)
Quarter: 2006Q1

REPORT INFORMATION
  Report Type: 
  Country: None (occurrence: None)
  Receive Date: 20060104
  Receipt Date: 20051221
  Transmission Date: 20060701
  Serious: Yes (Other)
  Sender: FDA-Public Use
  Company Number: 2005145566

PATIENT
  Age: 57 Year
  Sex: Female
  Weight: 68 kg

DRUGS (8)
  1. SULFASALAZINE [Suspect]
     Indication: RHEUMATOID ARTHRITIS
     Dosage: 1500 MG (500 MG, 3 IN 1 D), ORAL
     Route: 048
     Dates: start: 20050801
  2. OMEPRAZOLE [Concomitant]
  3. ENALAPRIL MALEATE [Concomitant]
  4. ALENDRONATE SODIUM [Concomitant]
  5. METHOTREXATE [Concomitant]
  6. FOLIC ACID [Concomitant]
  7. ASPIRIN [Concomitant]
  8. NIMESULIDE (NIMESULIDE) [Concomitant]

REACTIONS (6)
  - CONJUNCTIVAL HAEMORRHAGE [None]
  - EPISTAXIS [None]
  - HEPATOTOXICITY [None]
  - LABORATORY TEST ABNORMAL [None]
  - LIVEDO RETICULARIS [None]
  - VON WILLEBRAND'S FACTOR MULTIMERS ABNORMAL [None]
